FAERS Safety Report 8244439-5 (Version None)
Quarter: 2012Q1

REPORT INFORMATION
  Report Type: 
  Country: None (occurrence: None)
  Receive Date: 20120329
  Receipt Date: 20120323
  Transmission Date: 20120608
  Serious: Yes (Hospitalization)
  Sender: FDA-Public Use
  Company Number: RU-PFIZER INC-2012059139

PATIENT
  Age: 60 Year
  Sex: Female

DRUGS (2)
  1. LYRICA [Suspect]
     Dosage: 75 MG, 3X/DAY
     Route: 048
     Dates: start: 20120227, end: 20120227
  2. LYRICA [Suspect]
     Dosage: 75 MG, 2X/DAY
     Route: 048
     Dates: start: 20120228, end: 20120303

REACTIONS (6)
  - CONFUSIONAL STATE [None]
  - DRY MOUTH [None]
  - PALPITATIONS [None]
  - DIZZINESS [None]
  - MENTAL DISORDER [None]
  - ABDOMINAL PAIN UPPER [None]
